FAERS Safety Report 9544201 (Version 2)
Quarter: 2014Q1

REPORT INFORMATION
  Report Type: Spontaneous
  Country: US (occurrence: US)
  Receive Date: 20130923
  Receipt Date: 20140109
  Transmission Date: 20141002
  Serious: No
  Sender: FDA-Public Use
  Company Number: US-ASTRAZENECA-2013SE67727

PATIENT
  Age: 75 Year
  Sex: Female
  Weight: 97.5 kg

DRUGS (7)
  1. FASLODEX [Suspect]
     Indication: BREAST CANCER METASTATIC
     Route: 030
     Dates: start: 20130610
  2. FASLODEX [Suspect]
     Indication: BREAST CANCER METASTATIC
     Route: 030
     Dates: start: 20130904
  3. LISINOPRIL [Suspect]
     Indication: HYPERTENSION
     Route: 048
  4. ASPIRIN [Concomitant]
     Dosage: 81MG
  5. FUOSEMIDE [Concomitant]
  6. SERTRALINE [Concomitant]
     Dosage: 100MG
  7. POTASSIUM [Concomitant]
     Dosage: 8 MEQ

REACTIONS (7)
  - Panic attack [Recovered/Resolved]
  - Dysphoria [Recovered/Resolved]
  - Rhinorrhoea [Recovered/Resolved]
  - Paraesthesia [Recovered/Resolved]
  - Dysgeusia [Recovered/Resolved]
  - Cough [Recovered/Resolved]
  - Dizziness [Unknown]
